FAERS Safety Report 8217952-4 (Version None)
Quarter: 2012Q1

REPORT INFORMATION
  Report Type: 
  Country: None (occurrence: None)
  Receive Date: 20120315
  Receipt Date: 20120305
  Transmission Date: 20120608
  Serious: Yes (Other)
  Sender: FDA-Public Use
  Company Number: 2012AP000324

PATIENT
  Age: 80 Year
  Sex: Male

DRUGS (8)
  1. FINASTERIDE [Concomitant]
  2. RAMIPRIL [Suspect]
     Indication: HYPERTENSION
     Dosage: 1.25 MG; PO, QD
     Route: 048
  3. LAMOTRIGINE [Suspect]
     Indication: EPILEPSY
     Dosage: 25 MG;QD
  4. WARFARIN SODIUM [Concomitant]
  5. DOUBLEBASE (HYDROMOL) [Concomitant]
  6. LATANOPROST [Concomitant]
  7. TAMSULOSIN HCL [Concomitant]
  8. LEVOTHYROXINE SODIUM [Concomitant]

REACTIONS (4)
  - HAEMOGLOBIN DECREASED [None]
  - WHITE BLOOD CELL COUNT DECREASED [None]
  - ANAEMIA [None]
  - MYELODYSPLASTIC SYNDROME [None]
